FAERS Safety Report 7907388-5 (Version None)
Quarter: 2011Q4

REPORT INFORMATION
  Report Type: 
  Country: None (occurrence: None)
  Receive Date: 20111110
  Receipt Date: 20111101
  Transmission Date: 20120403
  Serious: Yes (Hospitalization)
  Sender: FDA-Public Use
  Company Number: CA-JNJFOC-20111102219

PATIENT
  Sex: Female
  Weight: 65.8 kg

DRUGS (5)
  1. PRILOSEC [Concomitant]
  2. TEMAZEPAM [Concomitant]
  3. ESTRACE [Concomitant]
  4. PROMETRIUM [Concomitant]
  5. REMICADE [Suspect]
     Indication: COLITIS ULCERATIVE
     Route: 042
     Dates: start: 20110608, end: 20111101

REACTIONS (1)
  - COLECTOMY [None]
